FAERS Safety Report 24799311 (Version 2)
Quarter: 2025Q2

REPORT INFORMATION
  Report Type: Spontaneous
  Country: US (occurrence: US)
  Receive Date: 20250102
  Receipt Date: 20250510
  Transmission Date: 20250716
  Serious: No
  Sender: SANOFI AVENTIS
  Company Number: US-SA-2024SA385680

PATIENT
  Age: 64 Year
  Sex: Female

DRUGS (18)
  1. DUPIXENT [Suspect]
     Active Substance: DUPILUMAB
     Indication: Asthma
     Dosage: 300 MG, QOW
     Route: 058
     Dates: start: 20241230
  2. GABAPENTIN [Concomitant]
     Active Substance: GABAPENTIN
  3. SPIRONOLACTONE [Concomitant]
     Active Substance: SPIRONOLACTONE
  4. FLUOXETINE HYDROCHLORIDE [Concomitant]
     Active Substance: FLUOXETINE HYDROCHLORIDE
  5. HYDROCODONE [Concomitant]
     Active Substance: HYDROCODONE
  6. FUROSEMIDE [Concomitant]
     Active Substance: FUROSEMIDE
  7. WARFARIN SODIUM [Concomitant]
     Active Substance: WARFARIN SODIUM
  8. CARVEDILOL [Concomitant]
     Active Substance: CARVEDILOL
  9. NICOTINE [Concomitant]
     Active Substance: NICOTINE
     Dosage: 21.000MG QD
  10. LORAZEPAM [Concomitant]
     Active Substance: LORAZEPAM
  11. PREDNISONE [Concomitant]
     Active Substance: PREDNISONE
  12. CLONIDINE HYDROCHLORIDE [Concomitant]
     Active Substance: CLONIDINE HYDROCHLORIDE
  13. AMITRIPTYLINE [Concomitant]
     Active Substance: AMITRIPTYLINE
  14. PANTOPRAZOLE [Concomitant]
     Active Substance: PANTOPRAZOLE
  15. MIRTAZAPINE [Concomitant]
     Active Substance: MIRTAZAPINE
  16. ATORVASTATIN [Concomitant]
     Active Substance: ATORVASTATIN
  17. ALBUTEROL [Concomitant]
     Active Substance: ALBUTEROL
  18. SERTRALINE HYDROCHLORIDE [Concomitant]
     Active Substance: SERTRALINE HYDROCHLORIDE

REACTIONS (8)
  - Stress [Unknown]
  - Depression [Not Recovered/Not Resolved]
  - Decreased appetite [Not Recovered/Not Resolved]
  - Restlessness [Not Recovered/Not Resolved]
  - Pain in extremity [Not Recovered/Not Resolved]
  - Muscle strain [Not Recovered/Not Resolved]
  - Asthma [Unknown]
  - Arthralgia [Not Recovered/Not Resolved]

NARRATIVE: CASE EVENT DATE: 20241201
